FAERS Safety Report 12861179 (Version 1)
Quarter: 2016Q4

REPORT INFORMATION
  Report Type: Spontaneous
  Country: GB (occurrence: GB)
  Receive Date: 20161019
  Receipt Date: 20161019
  Transmission Date: 20170207
  Serious: Yes (Death, Other)
  Sender: FDA-Public Use
  Company Number: PHFR2016GB008309

PATIENT
  Sex: Male

DRUGS (2)
  1. VOTRIENT [Suspect]
     Active Substance: PAZOPANIB HYDROCHLORIDE
     Dosage: 600 OT, UNK
     Route: 065
  2. VOTRIENT [Suspect]
     Active Substance: PAZOPANIB HYDROCHLORIDE
     Indication: PRODUCT USED FOR UNKNOWN INDICATION
     Dosage: 800 OT, UNK
     Route: 065

REACTIONS (7)
  - Alanine aminotransferase increased [Unknown]
  - Malaise [Unknown]
  - Nausea [Unknown]
  - Performance status decreased [Unknown]
  - Death [Fatal]
  - Renal failure [Unknown]
  - Diarrhoea [Unknown]
